FAERS Safety Report 6729078-7 (Version None)
Quarter: 2010Q2

REPORT INFORMATION
  Report Type: 
  Country: None (occurrence: None)
  Receive Date: 20100517
  Receipt Date: 20100321
  Transmission Date: 20101027
  Serious: No
  Sender: FDA-Public Use
  Company Number: US-ABBOTT-10P-163-0634484-00

PATIENT
  Sex: Male
  Weight: 86.26 kg

DRUGS (10)
  1. SIMCOR [Suspect]
     Indication: BLOOD TRIGLYCERIDES INCREASED
     Dosage: 500/20 DAILY
     Dates: start: 20090201
  2. SIMCOR [Suspect]
     Indication: LOW DENSITY LIPOPROTEIN INCREASED
     Dosage: 1000/20 DAILY
     Dates: start: 20100101
  3. HYZAAR [Concomitant]
     Indication: HYPERTENSION
     Dosage: 100/12.5 DAILY
  4. COREG CR [Concomitant]
     Indication: HYPERTENSION
     Dosage: 20 DAILY
     Dates: start: 20090101
  5. FLOMAX [Concomitant]
     Indication: DRUG USE FOR UNKNOWN INDICATION
  6. AVODART [Concomitant]
     Indication: PROSTATIC DISORDER
  7. ACTONEL [Concomitant]
     Indication: BONE DISORDER
  8. ASPIRIN [Concomitant]
     Indication: DRUG USE FOR UNKNOWN INDICATION
  9. VIT D [Concomitant]
     Indication: DRUG USE FOR UNKNOWN INDICATION
  10. CALCIUM [Concomitant]
     Indication: DRUG USE FOR UNKNOWN INDICATION

REACTIONS (3)
  - BLOOD TRIGLYCERIDES INCREASED [None]
  - HOT FLUSH [None]
  - LOW DENSITY LIPOPROTEIN INCREASED [None]
